FAERS Safety Report 11894042 (Version 2)
Quarter: 2016Q1

REPORT INFORMATION
  Report Type: Spontaneous
  Country: US (occurrence: US)
  Receive Date: 20160107
  Receipt Date: 20160118
  Transmission Date: 20160526
  Serious: Yes (Other)
  Sender: FDA-Public Use
  Company Number: US-APOTEX-2016AP005039

PATIENT
  Age: 62 Year
  Sex: Female

DRUGS (4)
  1. LAMIVUDINE AND ZIDOVUDINE [Concomitant]
     Active Substance: LAMIVUDINE\ZIDOVUDINE
     Indication: HIV INFECTION
     Dosage: UNK
     Route: 065
  2. BUDESONIDE. [Suspect]
     Active Substance: BUDESONIDE
     Indication: ASTHMA
     Dosage: 180 MCG/SPRAY, TWO PUFF A DAY
     Route: 055
  3. LOPINAVIR + RITONAVIR [Interacting]
     Active Substance: LOPINAVIR\RITONAVIR
     Indication: HIV INFECTION
     Dosage: RITONAVIR AT 100MG TWICE A DAY
     Route: 065
  4. BUDESONIDE. [Interacting]
     Active Substance: BUDESONIDE
     Dosage: 180 MICROG/SPRAY, TWO PUFFS TWICE A DAY
     Route: 055

REACTIONS (2)
  - Adrenal insufficiency [Recovered/Resolved]
  - Drug interaction [Recovered/Resolved]
